FAERS Safety Report 9247500 (Version 2)
Quarter: 2013Q3

REPORT INFORMATION
  Report Type: Report from Study
  Country: JP (occurrence: JP)
  Receive Date: 20130423
  Receipt Date: 20130807
  Transmission Date: 20140515
  Serious: Yes (Hospitalization)
  Sender: FDA-Public Use
  Company Number: JP-ASTELLAS-2013JP005207

PATIENT
  Age: 73 Year
  Sex: Female
  Weight: 69 kg

DRUGS (8)
  1. MIRABEGRON [Suspect]
     Indication: HYPERTONIC BLADDER
     Dosage: 50 MG, UID/QD
     Route: 048
     Dates: start: 20121001, end: 20121020
  2. MIRABEGRON [Suspect]
     Dosage: 50 MG, UID/QD
     Route: 048
  3. VESICARE [Concomitant]
     Indication: HYPERTONIC BLADDER
     Dosage: 10 MG, UNKNOWN/D
     Route: 048
     Dates: start: 20111122
  4. BLOPRESS [Concomitant]
     Indication: HYPERTENSION
     Dosage: 8 MG, UNKNOWN/D
     Route: 048
  5. NORVASC [Concomitant]
     Indication: HYPERTENSION
     Dosage: 5 MG, UNKNOWN/D
     Route: 048
  6. BEZATOL SR [Concomitant]
     Indication: HYPERLIPIDAEMIA
     Dosage: 400 MG, UNKNOWN/D
     Route: 048
  7. MELBIN                             /00082702/ [Concomitant]
     Indication: DIABETES MELLITUS
     Dosage: 500 MG, UNKNOWN/D
     Route: 048
  8. GLUFAST [Concomitant]
     Indication: DIABETES MELLITUS
     Dosage: 10 MG, UNKNOWN/D
     Route: 048

REACTIONS (1)
  - Schizoaffective disorder [Recovering/Resolving]
